FAERS Safety Report 4880456-0 (Version None)
Quarter: 2005Q4

REPORT INFORMATION
  Report Type: 
  Country: None (occurrence: None)
  Receive Date: 20051223
  Receipt Date: 20051003
  Transmission Date: 20060501
  Serious: No
  Sender: FDA-Public Use
  Company Number: 04P-163-0247666-00

PATIENT
  Age: 59 Year
  Sex: Female
  Weight: 57.6068 kg

DRUGS (10)
  1. HUMIRA [Suspect]
     Indication: RHEUMATOID ARTHRITIS
     Dosage: 40 MG, 1 IN 2 WK, SUBCUTANEOUS
     Route: 058
     Dates: start: 20031001
  2. METHOTREXATE SODIUM [Concomitant]
  3. PREDNISONE [Concomitant]
  4. NAPROXEN [Concomitant]
  5. NOVOTHYRAL [Concomitant]
  6. ESTROGENS CONJUGATED [Concomitant]
  7. MULTIVITAMIN [Concomitant]
  8. BIOTIN [Concomitant]
  9. FOLIC ACID [Concomitant]
  10. LIOTHYRONINE SODIUM [Concomitant]

REACTIONS (6)
  - INJECTION SITE ERYTHEMA [None]
  - INJECTION SITE PRURITUS [None]
  - NASOPHARYNGITIS [None]
  - PYREXIA [None]
  - SINUSITIS [None]
  - VISUAL BRIGHTNESS [None]
